FAERS Safety Report 9940827 (Version 1)
Quarter: 2014Q1

REPORT INFORMATION
  Report Type: Spontaneous
  Country: US (occurrence: US)
  Receive Date: 20140303
  Receipt Date: 20140303
  Transmission Date: 20141002
  Serious: No
  Sender: FDA-Public Use
  Company Number: US-PFIZER INC-2014057390

PATIENT
  Sex: Female

DRUGS (4)
  1. LYRICA [Suspect]
     Indication: FIBROMYALGIA
     Dosage: 25 MG, 1X/DAY
     Dates: start: 20140118, end: 2014
  2. LYRICA [Suspect]
     Dosage: 50 MG, 1X/DAY
     Dates: start: 2014, end: 2014
  3. LYRICA [Suspect]
     Dosage: 75 MG, 1X/DAY
     Dates: start: 2014, end: 20140220
  4. LYRICA [Suspect]
     Dosage: 100 MG, 1X/DAY
     Dates: start: 20140221

REACTIONS (2)
  - Rash [Not Recovered/Not Resolved]
  - Pruritus [Recovering/Resolving]
